FAERS Safety Report 9225897 (Version 1)
Quarter: 2013Q2

REPORT INFORMATION
  Report Type: Spontaneous
  Country: US (occurrence: US)
  Receive Date: 20130411
  Receipt Date: 20130411
  Transmission Date: 20140414
  Serious: Yes (Other)
  Sender: FDA-Public Use
  Company Number: US-ASTELLAS-2012US010118

PATIENT
  Sex: Male

DRUGS (2)
  1. PROTOPIC [Suspect]
     Indication: ANHIDROSIS
     Dosage: BID
     Route: 061
  2. CORTICOSTEROIDS [Suspect]
     Indication: SKIN INFECTION
     Dosage: UNK
     Route: 061

REACTIONS (7)
  - Off label use [Unknown]
  - Drug administration error [Unknown]
  - Infected skin ulcer [Not Recovered/Not Resolved]
  - Skin atrophy [Unknown]
  - Impaired healing [Unknown]
  - Skin ulcer [Not Recovered/Not Resolved]
  - Localised infection [Unknown]
